FAERS Safety Report 6903265-7 (Version None)
Quarter: 2010Q3

REPORT INFORMATION
  Report Type: 
  Country: None (occurrence: None)
  Receive Date: 20100803
  Receipt Date: 20080718
  Transmission Date: 20110219
  Serious: No
  Sender: FDA-Public Use
  Company Number: US-PFIZER INC-2008048138

PATIENT
  Age: 54 Year
  Sex: Male

DRUGS (4)
  1. LYRICA [Suspect]
     Indication: PAIN
     Dosage: FREQUENCY: HS
     Route: 048
  2. DIAZEPAM [Concomitant]
  3. OXYCODONE HCL AND ACETAMINOPHEN [Concomitant]
  4. ADDERALL XR 10 [Concomitant]

REACTIONS (2)
  - APHONIA [None]
  - DYSPHONIA [None]
